FAERS Safety Report 13565085 (Version 1)
Quarter: 2017Q2

REPORT INFORMATION
  Report Type: Spontaneous
  Country: US (occurrence: US)
  Receive Date: 20170519
  Receipt Date: 20170519
  Transmission Date: 20170830
  Serious: Yes (Other)
  Sender: FDA-Public Use
  Company Number: US-SA-2017SA086733

PATIENT
  Age: 80 Year
  Sex: Female

DRUGS (4)
  1. LANTUS SOLOSTAR [Suspect]
     Active Substance: INSULIN GLARGINE
     Indication: TYPE 2 DIABETES MELLITUS
     Dosage: DOSE:6 UNIT(S)
     Route: 051
     Dates: start: 20170312
  2. LANTUS SOLOSTAR [Suspect]
     Active Substance: INSULIN GLARGINE
     Indication: TYPE 2 DIABETES MELLITUS
     Dosage: DOSE:7 UNIT(S)
     Route: 051
     Dates: start: 2017
  3. SOLOSTAR [Concomitant]
     Active Substance: DEVICE
     Dates: start: 20170312
  4. SOLOSTAR [Concomitant]
     Active Substance: DEVICE
     Dates: start: 2017

REACTIONS (4)
  - Macular degeneration [Unknown]
  - Pancreatic carcinoma [Unknown]
  - Incorrect product storage [Unknown]
  - Cataract [Unknown]
